FAERS Safety Report 6206566-3 (Version None)
Quarter: 2009Q2

REPORT INFORMATION
  Report Type: 
  Country: None (occurrence: None)
  Receive Date: 20090528
  Receipt Date: 20090520
  Transmission Date: 20091009
  Serious: Yes (Hospitalization, Other)
  Sender: FDA-Public Use
  Company Number: CH-JNJFOC-20090504453

PATIENT
  Age: 77 Year
  Sex: Female

DRUGS (8)
  1. HALDOL [Suspect]
     Route: 048
  2. HALDOL [Suspect]
     Indication: DRUG USE FOR UNKNOWN INDICATION
     Route: 048
  3. SAROTEN [Suspect]
     Route: 048
  4. SAROTEN [Suspect]
     Route: 048
  5. SAROTEN [Suspect]
     Indication: DRUG USE FOR UNKNOWN INDICATION
     Route: 048
  6. DEPAKENE [Concomitant]
     Route: 048
  7. LAMICTAL [Concomitant]
     Route: 048
  8. ASPIRIN [Concomitant]
     Route: 048

REACTIONS (1)
  - CEREBROVASCULAR DISORDER [None]
